FAERS Safety Report 7544287-5 (Version None)
Quarter: 2011Q2

REPORT INFORMATION
  Report Type: 
  Country: None (occurrence: None)
  Receive Date: 20110613
  Receipt Date: 20070925
  Transmission Date: 20111010
  Serious: Yes (Death, Hospitalization)
  Sender: FDA-Public Use
  Company Number: PHFR2007GB02264

PATIENT
  Sex: Male

DRUGS (14)
  1. LORAZEPAM [Concomitant]
     Dosage: 1 - 3 MG / DAY
     Route: 065
  2. ACETAMINOPHEN AND CODEINE PHOSPHATE [Concomitant]
     Dosage: UNK
     Route: 065
  3. AMITRIPTYLINE HYDROCHLORIDE [Concomitant]
     Dosage: 10 MG, BID
     Route: 065
  4. SALAMOL EASI-BREATHE [Concomitant]
     Dosage: 100 UG, BID
  5. CHLORPROMAZINE [Concomitant]
     Dosage: 100 MG, TID
     Route: 065
  6. ACETAMINOPHEN [Concomitant]
     Dosage: UNK
     Route: 065
  7. PHYLLOCONTIN [Concomitant]
     Dosage: 225 MG, TID2SDO
     Route: 048
  8. SERETIDE EVOHALER [Concomitant]
     Dosage: 2 DF, BID
  9. LACTULOSE [Concomitant]
     Dosage: UNK %, UNK
     Route: 065
  10. CLOZAPINE [Suspect]
     Indication: SCHIZOPHRENIA
     Dosage: UNK
     Route: 048
     Dates: start: 19950120
  11. TOLTERODINE TARTRATE [Concomitant]
     Dosage: 4 MG, QD
     Route: 065
  12. PANTOPRAZOLE [Concomitant]
     Dosage: 40 MG, QD
     Route: 065
  13. GAVISCON /GFR/ [Concomitant]
     Dosage: UNK
     Route: 065
  14. IPRATROPIUM BROMIDE [Concomitant]
     Dosage: 500 UG, QID

REACTIONS (5)
  - CARDIAC ARREST [None]
  - BRONCHOPNEUMONIA [None]
  - CIRCULATORY COLLAPSE [None]
  - DYSPNOEA [None]
  - ASTHMA [None]
